FAERS Safety Report 16883101 (Version 1)
Quarter: 2019Q4

REPORT INFORMATION
  Report Type: Spontaneous
  Country: US (occurrence: US)
  Receive Date: 20191004
  Receipt Date: 20191004
  Transmission Date: 20200122
  Serious: No
  Sender: FDA-Public Use
  Company Number: US-SA-2019SA268259

PATIENT
  Age: 55 Year
  Sex: Male

DRUGS (5)
  1. EUCRISA [Concomitant]
     Active Substance: CRISABOROLE
  2. BETAMETHASONE DIPROPIONATE AUGMENTED [Concomitant]
     Active Substance: BETAMETHASONE DIPROPIONATE
  3. DUPIXENT [Suspect]
     Active Substance: DUPILUMAB
     Indication: DERMATITIS ATOPIC
     Dosage: 300 MG, QOW
     Route: 058
     Dates: start: 20190501
  4. FLUOCINONIDE-E [Concomitant]
     Active Substance: FLUOCINONIDE
  5. TRIAMCINOLONE ACETONIDE. [Concomitant]
     Active Substance: TRIAMCINOLONE ACETONIDE

REACTIONS (3)
  - Joint effusion [Unknown]
  - Therapeutic response shortened [Unknown]
  - Pruritus [Unknown]
